FAERS Safety Report 17970490 (Version 2)
Quarter: 2021Q3

REPORT INFORMATION
  Report Type: Spontaneous
  Country: US (occurrence: US)
  Receive Date: 20200701
  Receipt Date: 20210902
  Transmission Date: 20211014
  Serious: No
  Sender: FDA-Public Use
  Company Number: US-PFIZER INC-2019450409

PATIENT
  Age: 76 Year
  Sex: Female

DRUGS (1)
  1. XELJANZ [Suspect]
     Active Substance: TOFACITINIB CITRATE
     Indication: HYPERTENSION
     Dosage: 5 MG, UNK

REACTIONS (4)
  - Malaise [Unknown]
  - Off label use [Unknown]
  - Confusional state [Unknown]
  - Drug effective for unapproved indication [Unknown]
